FAERS Safety Report 5357051-2 (Version None)
Quarter: 2007Q2

REPORT INFORMATION
  Report Type: 
  Country: None (occurrence: None)
  Receive Date: 20070612
  Receipt Date: 20070612
  Transmission Date: 20071010
  Serious: Yes (Hospitalization)
  Sender: FDA-Public Use
  Company Number: None

PATIENT
  Age: 58 Year
  Sex: Male
  Weight: 115.2136 kg

DRUGS (4)
  1. GEMCITABINE [Suspect]
     Indication: PANCREATIC CARCINOMA METASTATIC
     Dosage: 1 GM/M2 WEEKLY
     Dates: start: 20070524
  2. LAPATINIB [Suspect]
     Indication: PANCREATIC CARCINOMA METASTATIC
     Dosage: 1500MG PO DAILY
     Route: 048
     Dates: start: 20070525, end: 20070526
  3. . [Concomitant]
     Indication: METASTASES TO LIVER
  4. . [Concomitant]
     Indication: METASTASES TO LIVER

REACTIONS (8)
  - ABDOMINAL PAIN [None]
  - BLOOD GLUCOSE INCREASED [None]
  - BLOOD POTASSIUM DECREASED [None]
  - DISEASE PROGRESSION [None]
  - HYPERBILIRUBINAEMIA [None]
  - LIVER FUNCTION TEST ABNORMAL [None]
  - OBSTRUCTION [None]
  - URINARY TRACT INFECTION [None]
